FAERS Safety Report 20164774 (Version 1)
Quarter: 2021Q4

REPORT INFORMATION
  Report Type: Report from Study
  Country: EG (occurrence: EG)
  Receive Date: 20211209
  Receipt Date: 20211209
  Transmission Date: 20220303
  Serious: Yes (Other)
  Sender: FDA-Public Use
  Company Number: EG-NOVARTISPH-NVSC2021EG278364

PATIENT
  Age: 44 Year
  Sex: Female

DRUGS (5)
  1. FEMARA [Suspect]
     Active Substance: LETROZOLE
     Indication: Breast cancer metastatic
     Dosage: UNK UNK, QD (2.5)
     Route: 048
     Dates: start: 202009, end: 20210324
  2. KISQALI [Suspect]
     Active Substance: RIBOCICLIB
     Indication: Breast cancer metastatic
     Dosage: 2 DOSAGE FORM, QD
     Route: 065
     Dates: start: 202009, end: 20210324
  3. TAXOL [Concomitant]
     Active Substance: PACLITAXEL
     Indication: Product used for unknown indication
     Dosage: UNK (MONTH ONCE WEEKLY)
     Route: 065
     Dates: start: 202110
  4. CARBOPLATIN [Concomitant]
     Active Substance: CARBOPLATIN
     Indication: Product used for unknown indication
     Dosage: UNK (START DATE MAY OR JUNE 2021)
     Route: 065
     Dates: end: 202110
  5. XELODA [Concomitant]
     Active Substance: CAPECITABINE
     Indication: Product used for unknown indication
     Dosage: UNK (FAILED ON TREATMENT)
     Route: 065
     Dates: start: 202104, end: 202105

REACTIONS (4)
  - Breast cancer recurrent [Recovering/Resolving]
  - Pulmonary oedema [Recovering/Resolving]
  - Breast cancer metastatic [Recovering/Resolving]
  - Malignant neoplasm progression [Recovering/Resolving]

NARRATIVE: CASE EVENT DATE: 20210322
